FAERS Safety Report 6230831-7 (Version None)
Quarter: 2009Q2

REPORT INFORMATION
  Report Type: 
  Country: None (occurrence: None)
  Receive Date: 20090616
  Receipt Date: 20090608
  Transmission Date: 20091009
  Serious: Yes (Other)
  Sender: FDA-Public Use
  Company Number: US-JNJFOC-20090603402

PATIENT
  Age: 74 Year
  Sex: Female
  Weight: 68.04 kg

DRUGS (27)
  1. IMODIUM MULTI-SYMPTOM RELIEF [Suspect]
     Route: 048
  2. IMODIUM MULTI-SYMPTOM RELIEF [Suspect]
     Indication: DIARRHOEA
     Route: 048
  3. MIRALAX [Interacting]
     Indication: IRRITABLE BOWEL SYNDROME
     Dosage: 3/4 TO 1 TSP DAILY FOR A LONG TIME
  4. SINGULAIR [Concomitant]
     Indication: EMPHYSEMA
     Dosage: MANY YEARS
  5. PREDNISONE [Concomitant]
     Indication: EMPHYSEMA
     Dosage: MANY YEARS
  6. NULEV [Concomitant]
     Indication: MUSCLE SPASMS
     Dosage: TAKEN IN PAST 2 WEEKS
  7. TRILEPTAL [Concomitant]
     Indication: TRIGEMINAL NERVE DISORDER
     Dosage: YEARS
  8. FAMOTIDINE [Concomitant]
     Indication: ABDOMINAL DISCOMFORT
     Dosage: LONG TIME
  9. BENTYL [Concomitant]
     Indication: GASTROINTESTINAL PAIN
     Dosage: LONG TIME
  10. LORAZEPAM [Concomitant]
     Indication: SEDATIVE THERAPY
     Dosage: TAKEN FOR THE PAST 2 WEEKS
  11. NASONEX [Concomitant]
     Indication: EMPHYSEMA
     Dosage: 1 SPRAY ALTERNATING NOSTRILS
  12. ADVAIR HFA [Concomitant]
     Indication: EMPHYSEMA
     Dosage: ONE PUFF
  13. SPIRIVA [Concomitant]
     Indication: EMPHYSEMA
  14. LISINOPRIL [Concomitant]
     Indication: BLOOD PRESSURE
     Dosage: MANY YEARS
  15. NORVASC [Concomitant]
     Indication: BLOOD PRESSURE
     Dosage: MANY YEARS
  16. MUCINEX [Concomitant]
     Indication: EMPHYSEMA
     Dosage: MANY YEARS
  17. ZETIA [Concomitant]
     Indication: BLOOD CHOLESTEROL
     Dosage: MANY YEARS
  18. ASCORBIC ACID [Concomitant]
     Indication: MEDICAL DIET
     Dosage: MANY YEARS
  19. E VITAMIN [Concomitant]
     Indication: MEDICAL DIET
     Dosage: MANY YEARS
  20. ASPIRIN [Concomitant]
     Indication: CARDIAC DISORDER
     Dosage: MANY YEARS
  21. TYLENOL (CAPLET) [Concomitant]
     Indication: HEADACHE
     Dosage: 1-2 TABS 2-3 TIMES DAILY SINCE A FEW MONTHS
  22. GAS X [Concomitant]
     Indication: FLATULENCE
     Dosage: TAKEN IN PAST 2 WEEKS
  23. UNSPECIFIED ROBITUSSIN [Concomitant]
     Indication: COUGH
     Dosage: AT BEDTIME, TAKEN IN PAST 2 WEEKS
  24. BETHANECHOL [Concomitant]
     Indication: URINARY RETENTION
     Dosage: 1-2 TABS (FIRST DOSE AT 1:30 PM TODAY) THRICE A DAY AS NEEDED
  25. CENTRUM SILVER [Concomitant]
     Indication: MEDICAL DIET
     Dosage: FOR YEARS
  26. CALTRATE D [Concomitant]
     Indication: MEDICAL DIET
     Dosage: FOR YEARS
  27. ACIDOPHILUS [Concomitant]
     Indication: GASTROINTESTINAL DISORDER
     Dosage: 2-3 WEEKS

REACTIONS (2)
  - DRUG INTERACTION [None]
  - URINARY RETENTION [None]
